FAERS Safety Report 24902094 (Version 1)
Quarter: 2025Q1

REPORT INFORMATION
  Report Type: Spontaneous
  Country: US (occurrence: US)
  Receive Date: 20250129
  Receipt Date: 20250129
  Transmission Date: 20250409
  Serious: Yes (Hospitalization, Other)
  Sender: NOVITIUM PHARMA
  Company Number: US-NOVITIUMPHARMA-2025USNVP00215

PATIENT
  Age: 29 Year
  Sex: Female

DRUGS (4)
  1. ALPRAZOLAM [Suspect]
     Active Substance: ALPRAZOLAM
     Indication: Anxiety
  2. PRAZOSIN [Suspect]
     Active Substance: PRAZOSIN
     Indication: Nightmare
  3. PRAZOSIN [Suspect]
     Active Substance: PRAZOSIN
     Indication: Hyperarousal
  4. NALTREXONE [Concomitant]
     Active Substance: NALTREXONE
     Indication: Alcoholism

REACTIONS (8)
  - Palpitations [Unknown]
  - Asthenia [Unknown]
  - Suicidal ideation [Unknown]
  - Withdrawal syndrome [Unknown]
  - Tachyphrenia [Unknown]
  - Panic disorder [Unknown]
  - Disturbance in attention [Unknown]
  - Intentional product misuse [Unknown]
